FAERS Safety Report 5794243-2 (Version None)
Quarter: 2008Q2

REPORT INFORMATION
  Report Type: 
  Country: None (occurrence: None)
  Receive Date: 20080625
  Receipt Date: 20080617
  Transmission Date: 20081010
  Serious: Yes (Death, Hospitalization, Other)
  Sender: FDA-Public Use
  Company Number: 163-21880-08041385

PATIENT
  Age: 81 Year
  Sex: Male

DRUGS (3)
  1. REVLIMID [Suspect]
     Indication: MULTIPLE MYELOMA
     Dosage: 10 MG, 1 IN 1 D,ORAL
     Route: 048
     Dates: start: 20080410, end: 20080412
  2. PREDNISONE TAB [Concomitant]
  3. EPO (ERYTHROPOIETIN) [Concomitant]

REACTIONS (5)
  - ANAEMIA [None]
  - MULTIPLE MYELOMA [None]
  - PAIN [None]
  - RENAL FAILURE ACUTE [None]
  - RESPIRATORY ACIDOSIS [None]
